FAERS Safety Report 4544813-4 (Version None)
Quarter: 2005Q1

REPORT INFORMATION
  Report Type: 
  Country: None (occurrence: None)
  Receive Date: 20050105
  Receipt Date: 20041220
  Transmission Date: 20050727
  Serious: Yes (Life-Threatening)
  Sender: FDA-Public Use
  Company Number: DE-ROCHE-389657

PATIENT
  Age: 65 Year
  Sex: Male
  Weight: 168 kg

DRUGS (7)
  1. CAPECITABINE [Suspect]
     Route: 048
     Dates: start: 20040609, end: 20040705
  2. OXALIPLATIN [Suspect]
     Route: 042
     Dates: start: 20040602, end: 20040619
  3. OXALIPLATIN [Suspect]
     Route: 042
     Dates: start: 20040626, end: 20040705
  4. DELIX [Concomitant]
     Dosage: DOSE REPORTED AS 1-0-0
     Route: 048
  5. ASPIRIN [Concomitant]
     Dosage: DOSE REPORTED AS 1-0-0
     Route: 048
  6. UNKNOWN [Concomitant]
     Dosage: DOSE REPORTED AS 1-0-0
     Route: 048
  7. UNKNOWN [Concomitant]
     Dosage: DOSE REPORTED AS 1-0-0
     Route: 048

REACTIONS (3)
  - FAILURE TO ANASTOMOSE [None]
  - PERITONITIS [None]
  - SEPTIC SHOCK [None]
